FAERS Safety Report 5495636-3 (Version None)
Quarter: 2007Q4

REPORT INFORMATION
  Report Type: 
  Country: None (occurrence: None)
  Receive Date: 20071025
  Receipt Date: 20071018
  Transmission Date: 20080405
  Serious: Yes (Other)
  Sender: FDA-Public Use
  Company Number: DE-JNJFOC-20070700393

PATIENT
  Sex: Female

DRUGS (5)
  1. RISPERDAL [Suspect]
  2. RISPERDAL [Suspect]
  3. RISPERDAL [Suspect]
  4. RISPERDAL [Suspect]
  5. RISPERDAL [Suspect]
     Indication: DRUG USE FOR UNKNOWN INDICATION

REACTIONS (4)
  - DISTURBANCE IN ATTENTION [None]
  - PERSONALITY CHANGE [None]
  - THINKING ABNORMAL [None]
  - TREMOR [None]
